FAERS Safety Report 6693215-3 (Version None)
Quarter: 2010Q2

REPORT INFORMATION
  Report Type: 
  Country: None (occurrence: None)
  Receive Date: 20100421
  Receipt Date: 20100421
  Transmission Date: 20101027
  Serious: No
  Sender: FDA-Public Use
  Company Number: None

PATIENT
  Sex: Male
  Weight: 102.0593 kg

DRUGS (1)
  1. ABILIFY [Suspect]
     Indication: DEPRESSION
     Dosage: 20MG 1 PER DAY PO, APPROX 1 YEAR
     Route: 048
     Dates: start: 20080101, end: 20081225

REACTIONS (4)
  - ASTHENIA [None]
  - DYSKINESIA [None]
  - PROTRUSION TONGUE [None]
  - TARDIVE DYSKINESIA [None]
